FAERS Safety Report 9644464 (Version 4)
Quarter: 2013Q4

REPORT INFORMATION
  Report Type: Spontaneous
  Country: US (occurrence: US)
  Receive Date: 20131025
  Receipt Date: 20131227
  Transmission Date: 20140711
  Serious: Yes (Other)
  Sender: FDA-Public Use
  Company Number: US-ASTRAZENECA-2012SE69188

PATIENT
  Age: 62 Year
  Sex: Male

DRUGS (3)
  1. ATACAND [Suspect]
     Indication: BLOOD PRESSURE ABNORMAL
     Route: 048
     Dates: start: 2009
  2. ATACAND [Suspect]
     Indication: BLOOD PRESSURE ABNORMAL
     Route: 048
     Dates: start: 2012
  3. ATACAND [Suspect]
     Indication: BLOOD PRESSURE ABNORMAL
     Dosage: CUTTING HIS  TABLETS IN HALF
     Route: 048
     Dates: start: 2013

REACTIONS (4)
  - Rotator cuff syndrome [Unknown]
  - Fall [Unknown]
  - Insomnia [Unknown]
  - Intentional drug misuse [Unknown]
